FAERS Safety Report 8789716 (Version 1)
Quarter: 2012Q4

REPORT INFORMATION
  Report Type: Spontaneous
  Country: US (occurrence: None)
  Receive Date: 20120905
  Receipt Date: 20120905
  Transmission Date: 20130627
  Serious: Yes (Hospitalization)
  Sender: FDA-Public Use
  Company Number: 2012ST000653

PATIENT
  Age: 13 Year
  Sex: Male

DRUGS (2)
  1. MATULANE CAPSULES [Suspect]
     Indication: LYMPHOMA
     Route: 048
     Dates: start: 20120229
  2. MATULANE CAPSULES [Suspect]
     Indication: LYMPHOMA
     Route: 048
     Dates: start: 20120229

REACTIONS (4)
  - Lethargy [None]
  - Hyperthyroidism [None]
  - Thyrotoxic crisis [None]
  - Viral infection [None]
